FAERS Safety Report 11065422 (Version 2)
Quarter: 2015Q2

REPORT INFORMATION
  Report Type: Spontaneous
  Country: US (occurrence: US)
  Receive Date: 20150425
  Receipt Date: 20150525
  Transmission Date: 20150821
  Serious: No
  Sender: FDA-Public Use
  Company Number: US-JNJFOC-20131202858

PATIENT
  Age: 47 Year
  Sex: Male
  Weight: 77.11 kg

DRUGS (1)
  1. STELARA [Suspect]
     Active Substance: USTEKINUMAB
     Indication: PSORIASIS
     Route: 058
     Dates: start: 2013

REACTIONS (5)
  - Product label issue [Unknown]
  - Device malfunction [Unknown]
  - Wrong technique in drug usage process [Unknown]
  - Accidental exposure to product [Unknown]
  - Drug dose omission [Unknown]

NARRATIVE: CASE EVENT DATE: 20131203
